FAERS Safety Report 21377343 (Version 6)
Quarter: 2023Q1

REPORT INFORMATION
  Report Type: Spontaneous
  Country: FR (occurrence: FR)
  Receive Date: 20220926
  Receipt Date: 20230213
  Transmission Date: 20230418
  Serious: Yes (Other)
  Sender: FDA-Public Use
  Company Number: FR-GSKCCFEMEA-Case-01527741_AE-59830

PATIENT
  Age: 38 Year
  Sex: Female
  Weight: 167 kg

DRUGS (11)
  1. ACETAMINOPHEN [Suspect]
     Active Substance: ACETAMINOPHEN
     Indication: Product used for unknown indication
     Dosage: UNK
     Route: 065
     Dates: start: 20190509
  2. ACETAMINOPHEN [Suspect]
     Active Substance: ACETAMINOPHEN
     Dosage: 9 MILLIGRAM, QD
     Route: 065
  3. PREDNISONE [Suspect]
     Active Substance: PREDNISONE
     Indication: Product used for unknown indication
     Dosage: 9 MILLIGRAM, QD, 9 MG TAB DAILY ORALLY
     Route: 048
     Dates: start: 20190509
  4. PREDNISONE [Suspect]
     Active Substance: PREDNISONE
     Dosage: UNK
     Route: 065
     Dates: start: 20190509
  5. PREDNISONE [Suspect]
     Active Substance: PREDNISONE
     Dosage: 9 MILLIGRAM, QD
     Route: 048
  6. DESLORATADINE [Suspect]
     Active Substance: DESLORATADINE
     Indication: Product used for unknown indication
     Dosage: UNK
     Route: 065
  7. BENLYSTA [Suspect]
     Active Substance: BELIMUMAB
     Indication: Systemic lupus erythematosus
     Dosage: 200 MILLIGRAM, QW, 200 MG, WEEKLY
     Route: 058
     Dates: start: 20190502, end: 20190509
  8. BENLYSTA [Suspect]
     Active Substance: BELIMUMAB
     Dosage: UNK
     Route: 058
     Dates: start: 20190509
  9. BENLYSTA [Suspect]
     Active Substance: BELIMUMAB
     Dosage: 200MILLIGRAM,QW(200 MG,WE,WEEKLY)
     Route: 058
     Dates: start: 20190628
  10. BENLYSTA [Suspect]
     Active Substance: BELIMUMAB
     Indication: Systemic lupus erythematosus
     Dosage: 200 MILLIGRAM, QW
     Route: 042
     Dates: start: 20190628
  11. BENLYSTA [Suspect]
     Active Substance: BELIMUMAB
     Dosage: 200 MG, WE
     Route: 042
     Dates: start: 201906

REACTIONS (12)
  - Fatigue [Recovered/Resolved]
  - Musculoskeletal pain [Recovered/Resolved]
  - Abdominal pain [Recovered/Resolved]
  - Nausea [Recovered/Resolved]
  - Drug abuse [Unknown]
  - Chills [Unknown]
  - Pyrexia [Unknown]
  - Injection site reaction [Unknown]
  - Drug tolerance decreased [Recovered/Resolved]
  - Injection site rash [Unknown]
  - Vomiting [Unknown]
  - Drug intolerance [Recovered/Resolved]

NARRATIVE: CASE EVENT DATE: 20190629
